FAERS Safety Report 6644524-5 (Version None)
Quarter: 2010Q1

REPORT INFORMATION
  Report Type: 
  Country: None (occurrence: None)
  Receive Date: 20100322
  Receipt Date: 20100312
  Transmission Date: 20100710
  Serious: Yes (Other)
  Sender: FDA-Public Use
  Company Number: US-SANOFI-AVENTIS-2010SA003342

PATIENT
  Sex: Female
  Weight: 77.11 kg

DRUGS (11)
  1. LANTUS [Suspect]
     Indication: TYPE 2 DIABETES MELLITUS
     Dosage: DOSE:22 UNIT(S)
     Route: 058
     Dates: start: 20061205
  2. SOLOSTAR [Suspect]
     Indication: TYPE 2 DIABETES MELLITUS
  3. AVAPRO [Concomitant]
     Route: 048
  4. HYDROCHLOROTHIAZIDE [Concomitant]
     Route: 048
  5. AMLODIPINE BESILATE [Concomitant]
     Route: 048
  6. GLIMEPIRIDE [Concomitant]
     Route: 048
  7. PENTOXIFYLLINE [Concomitant]
     Route: 048
  8. PRAVASTATIN [Concomitant]
     Route: 048
  9. ASPIRIN [Concomitant]
     Route: 048
  10. MULTI-VITAMINS [Concomitant]
     Dosage: TAKES (2) I CAPS A DAY; MULTIVITAMIN FOR THE EYE.
  11. LEVOBUNOLOL HCL [Concomitant]
     Dosage: 1 GTT TO BOTH EYES TWICE A DAY = 4 GTTS.
     Route: 047

REACTIONS (2)
  - CATARACT [None]
  - GLAUCOMA [None]
